FAERS Safety Report 5167811-9 (Version None)
Quarter: 2006Q4

REPORT INFORMATION
  Report Type: 
  Country: None (occurrence: None)
  Receive Date: 20061208
  Receipt Date: 20061128
  Transmission Date: 20070319
  Serious: Yes (Other)
  Sender: FDA-Public Use
  Company Number: PHNU2006DE03990

PATIENT
  Sex: Male

DRUGS (5)
  1. DIOVAN [Suspect]
     Indication: HYPERTENSION
     Dosage: 40 MG, QID
     Route: 048
     Dates: start: 20060101
  2. TOREM [Suspect]
     Indication: HYPERTENSION
     Dates: start: 20060101
  3. AMIODARONE HCL [Suspect]
     Indication: ARRHYTHMIA
     Dosage: 200 MG/D
     Dates: start: 20060101
  4. ATORVASTATIN CALCIUM [Suspect]
     Indication: HYPERLIPIDAEMIA
     Dates: start: 20060101
  5. MARCUMAR [Concomitant]
     Indication: THROMBOSIS PROPHYLAXIS
     Dosage: UNK, PRN

REACTIONS (3)
  - BRADYCARDIA [None]
  - DRUG INTERACTION [None]
  - FATIGUE [None]
